FAERS Safety Report 12697634 (Version 1)
Quarter: 2016Q3

REPORT INFORMATION
  Report Type: Spontaneous
  Country: US (occurrence: None)
  Receive Date: 20160829
  Receipt Date: 20160829
  Transmission Date: 20161109
  Serious: No
  Sender: FDA-Public Use
  Company Number: None

PATIENT
  Age: 54 Year
  Sex: Female
  Weight: 48.99 kg

DRUGS (1)
  1. CEPHALEXIN, 500 MG VIRTUS PHARMACEUTICAL [Suspect]
     Active Substance: CEPHALEXIN
     Indication: INFECTION PROPHYLAXIS
     Dosage: 40 CAPSULES FOUR TIMES A DAY
     Route: 048
     Dates: start: 20160810, end: 20160820

REACTIONS (1)
  - Vulvovaginal mycotic infection [None]

NARRATIVE: CASE EVENT DATE: 20160821
